FAERS Safety Report 10141588 (Version 2)
Quarter: 2014Q2

REPORT INFORMATION
  Report Type: Spontaneous
  Country: JP (occurrence: JP)
  Receive Date: 20140429
  Receipt Date: 20140519
  Transmission Date: 20141212
  Serious: Yes (Hospitalization)
  Sender: FDA-Public Use
  Company Number: JP-GLAXOSMITHKLINE-B0989268A

PATIENT
  Age: 87 Year
  Sex: Male

DRUGS (16)
  1. AVOLVE [Suspect]
     Indication: BENIGN PROSTATIC HYPERPLASIA
     Dosage: .5MG PER DAY
     Route: 048
     Dates: start: 20140409, end: 20140424
  2. ONON [Concomitant]
     Dosage: 225MG TWICE PER DAY
     Route: 048
  3. SYMBICORT [Concomitant]
     Dosage: 1IUAX PER DAY
     Route: 055
  4. THEODUR [Concomitant]
     Dosage: 100MG TWICE PER DAY
     Route: 048
  5. NASONEX [Concomitant]
     Route: 045
  6. GLYCERIN [Concomitant]
     Route: 045
  7. ADALAT [Concomitant]
     Dosage: 40MG PER DAY
     Route: 048
  8. PROMAC [Concomitant]
     Dosage: 75MG TWICE PER DAY
     Route: 048
  9. METHYCOBAL [Concomitant]
     Dosage: 500MCG TWICE PER DAY
     Route: 048
  10. PARIET [Concomitant]
     Dosage: 10MG PER DAY
     Route: 048
  11. DERMOVATE [Concomitant]
     Route: 061
  12. DOVONEX [Concomitant]
     Route: 061
  13. NERISONA [Concomitant]
     Route: 061
  14. EKSALB [Concomitant]
     Route: 061
  15. MAGLAX [Concomitant]
     Dosage: 250MG TWICE PER DAY
     Route: 048
  16. LAXOBERON [Concomitant]
     Route: 048

REACTIONS (4)
  - Vomiting [Recovering/Resolving]
  - Dizziness [Recovering/Resolving]
  - Nausea [Recovering/Resolving]
  - Asthenia [Recovering/Resolving]
